FAERS Safety Report 8409053 (Version 2)
Quarter: 2012Q4

REPORT INFORMATION
  Report Type: Report from Study
  Country: JP (occurrence: JP)
  Receive Date: 20120216
  Receipt Date: 20121107
  Transmission Date: 20130627
  Serious: Yes (Hospitalization, Other)
  Sender: FDA-Public Use
  Company Number: PHHY2012JP012384

PATIENT
  Age: 80 None
  Sex: Male
  Weight: 44 kg

DRUGS (23)
  1. ALISKIREN [Suspect]
     Dosage: 150 mg, UNK
     Route: 048
     Dates: start: 20100716, end: 20110501
  2. ALISKIREN [Suspect]
     Dosage: 150 mg, UNK
     Route: 048
     Dates: start: 20110622
  3. BLOPRESS [Concomitant]
     Indication: HYPERTENSION
     Dosage: 4 mg
     Route: 048
  4. BLOPRESS [Concomitant]
     Dosage: 2 mg, UNK
  5. BLOPRESS [Concomitant]
     Dosage: 4 mg
  6. BLOPRESS [Concomitant]
     Dosage: 8 mg, UNK
  7. CARDENALIN [Concomitant]
     Dosage: 4mg, 2  mg
     Route: 048
  8. MUCODYNE [Concomitant]
     Dosage: 1500 mg, UNK
     Route: 048
     Dates: end: 20110503
  9. BAYASPIRIN [Concomitant]
     Dosage: 100 mg, UNK
     Route: 048
  10. TAKEPRON [Concomitant]
     Indication: PROPHYLAXIS
     Dosage: 15 mg, UNK
     Route: 048
  11. ZYLORIC [Concomitant]
     Dosage: 100 mg, UNK
     Route: 048
  12. ZYLORIC [Concomitant]
     Dosage: 50 mg, UNK
     Route: 048
  13. DAREN [Concomitant]
     Dosage: 2 mg, UNK
     Route: 048
     Dates: end: 20110503
  14. RENAGEL [Concomitant]
     Dosage: 6 g, UNK
     Route: 048
     Dates: end: 20110503
  15. RENAGEL [Concomitant]
     Dosage: 4500 mg, UNK
     Route: 048
  16. SINGULAIR [Concomitant]
     Dosage: 10 mg, UNK
     Route: 048
     Dates: start: 20110621
  17. SPELEAR [Concomitant]
     Dosage: 1200 mg, UNK
     Route: 048
     Dates: start: 20110621
  18. HORNEL [Concomitant]
     Dosage: 0.3 ug, UNK
     Route: 048
     Dates: end: 20110504
  19. LOCHOL [Concomitant]
     Dosage: 20 mg, UNK
     Route: 048
  20. CALTAN [Concomitant]
     Dosage: 200 mg, UNK
     Route: 048
  21. REGPARA [Concomitant]
     Dosage: 50 mg, UNK
     Route: 048
  22. REMITCH [Concomitant]
     Dosage: 2.5 ug, UNK
     Route: 048
  23. OXAROL [Concomitant]
     Route: 042
     Dates: start: 20100320, end: 20100717

REACTIONS (9)
  - Respiratory failure [Recovering/Resolving]
  - Depressed level of consciousness [Unknown]
  - Dialysis disequilibrium syndrome [Unknown]
  - Blood pressure systolic increased [Unknown]
  - Blood pressure diastolic decreased [Unknown]
  - Blood uric acid increased [Unknown]
  - Blood creatinine increased [Unknown]
  - Blood urea increased [Unknown]
  - Haemodynamic instability [Unknown]
